FAERS Safety Report 8613100-7 (Version None)
Quarter: 2012Q3

REPORT INFORMATION
  Report Type: 
  Country: None (occurrence: None)
  Receive Date: 20120822
  Receipt Date: 20120813
  Transmission Date: 20120928
  Serious: Yes (Hospitalization)
  Sender: FDA-Public Use
  Company Number: US-ABBOTT-12P-163-0968161-00

PATIENT
  Age: 28 Year
  Sex: Female

DRUGS (1)
  1. HUMIRA [Suspect]
     Indication: CROHN'S DISEASE
     Dates: start: 20120531

REACTIONS (6)
  - GASTROINTESTINAL INFECTION [None]
  - HAEMORRHAGE [None]
  - CROHN'S DISEASE [None]
  - VOMITING [None]
  - DIARRHOEA [None]
  - NAUSEA [None]
